FAERS Safety Report 4690404-4 (Version None)
Quarter: 2005Q2

REPORT INFORMATION
  Report Type: 
  Country: None (occurrence: None)
  Receive Date: 20050615
  Receipt Date: 20050317
  Transmission Date: 20051028
  Serious: Yes (Hospitalization)
  Sender: FDA-Public Use
  Company Number: IT-SANOFI-SYNTHELABO-A06200500073

PATIENT
  Sex: Male

DRUGS (6)
  1. ELOXATIN [Suspect]
     Indication: COLON CANCER METASTATIC
     Route: 041
     Dates: start: 20050131, end: 20050131
  2. FLUOROURACIL [Concomitant]
     Indication: COLON CANCER METASTATIC
     Dosage: 700 MG IV IN BOLUS AND THEN 1050 MG INFUSION.
     Route: 042
  3. LEDERFOLIN [Concomitant]
     Indication: COLON CANCER METASTATIC
     Route: 041
  4. ORAL HYPOGLYCEMICS [Concomitant]
     Indication: DIABETES MELLITUS NON-INSULIN-DEPENDENT
     Dosage: UNK
     Route: 048
  5. DECADRON [Concomitant]
     Indication: PREMEDICATION
     Route: 040
     Dates: start: 20050131, end: 20050131
  6. RANIDIL [Concomitant]
     Indication: PREMEDICATION
     Route: 040
     Dates: start: 20050131, end: 20050131

REACTIONS (1)
  - CONVULSION [None]
